FAERS Safety Report 23990062 (Version 1)
Quarter: 2024Q2

REPORT INFORMATION
  Report Type: Spontaneous
  Country: GB (occurrence: GB)
  Receive Date: 20240619
  Receipt Date: 20240619
  Transmission Date: 20240715
  Serious: Yes (Hospitalization, Other)
  Sender: FDA-Public Use
  Company Number: GB-AMERICAN REGENT INC-2024002302

PATIENT
  Age: 24 Year
  Sex: Female
  Weight: 48 kg

DRUGS (2)
  1. FERINJECT [Suspect]
     Active Substance: FERRIC CARBOXYMALTOSE
     Indication: Iron deficiency
     Dosage: APPROX. 800MG (OF A 950MG INFUSION)
     Dates: start: 20240605, end: 20240605
  2. ACETAMINOPHEN [Concomitant]
     Active Substance: ACETAMINOPHEN
     Indication: Product used for unknown indication
     Dosage: UNK
     Route: 065

REACTIONS (9)
  - Hyperventilation [Recovered/Resolved]
  - Agitation [Recovering/Resolving]
  - Swollen tongue [Recovered/Resolved]
  - Maternal exposure during breast feeding [Unknown]
  - Rash vesicular [Recovered/Resolved]
  - Swelling face [Recovered/Resolved]
  - Rash [Recovering/Resolving]
  - Paraesthesia oral [Recovered/Resolved]
  - Paraesthesia [Recovered/Resolved]

NARRATIVE: CASE EVENT DATE: 20240605
